FAERS Safety Report 5682575-8 (Version None)
Quarter: 2008Q1

REPORT INFORMATION
  Report Type: 
  Country: None (occurrence: None)
  Receive Date: 20080327
  Receipt Date: 20080102
  Transmission Date: 20080703
  Serious: No
  Sender: FDA-Public Use
  Company Number: US-BRISTOL-MYERS SQUIBB COMPANY-14018949

PATIENT
  Age: 94 Year
  Sex: Female

DRUGS (7)
  1. ORENCIA [Suspect]
     Indication: RHEUMATOID ARTHRITIS
     Dosage: DOSE 4 ON 02-JAN-2008
     Route: 042
     Dates: start: 20071119
  2. TRAMADOL HCL [Concomitant]
  3. POTASSIUM CHLORIDE [Concomitant]
  4. HYDROCHLOROTHIAZIDE [Concomitant]
  5. BENADRYL [Concomitant]
  6. PREDNISOLONE [Concomitant]
  7. VITAMINS [Concomitant]

REACTIONS (4)
  - AGITATION [None]
  - AMNESIA [None]
  - DEMENTIA [None]
  - HYPERVIGILANCE [None]
